FAERS Safety Report 16113352 (Version 4)
Quarter: 2019Q2

REPORT INFORMATION
  Report Type: Spontaneous
  Country: PR (occurrence: PR)
  Receive Date: 20190325
  Receipt Date: 20190522
  Transmission Date: 20190711
  Serious: No
  Sender: FDA-Public Use
  Company Number: PR-PFIZER INC-2019123061

PATIENT
  Age: 51 Year
  Sex: Female
  Weight: 68.27 kg

DRUGS (3)
  1. IBRANCE [Suspect]
     Active Substance: PALBOCICLIB
     Indication: BREAST CANCER FEMALE
     Dosage: 100 MG, CYCLIC (1 CAPSULE, DAILY 21 DAY ON, 7 DAYS OFF)
     Route: 048
     Dates: start: 201810
  2. ZITHROMAX [Suspect]
     Active Substance: AZITHROMYCIN DIHYDRATE
     Dosage: UNK
  3. IBRANCE [Suspect]
     Active Substance: PALBOCICLIB
     Dosage: 100 MG, CYCLIC (21 DAYS ON AND 7 DAYS OFF)
     Route: 048
     Dates: start: 20190314

REACTIONS (6)
  - Alopecia [Unknown]
  - Platelet count decreased [Unknown]
  - Limb injury [Unknown]
  - White blood cell count decreased [Unknown]
  - Hot flush [Unknown]
  - Mouth injury [Unknown]

NARRATIVE: CASE EVENT DATE: 20190328
